FAERS Safety Report 23262017 (Version 1)
Quarter: 2023Q4

REPORT INFORMATION
  Report Type: Spontaneous
  Country: US (occurrence: US)
  Receive Date: 20231205
  Receipt Date: 20231205
  Transmission Date: 20240110
  Serious: No
  Sender: FDA-Public Use
  Company Number: US-BRISTOL-MYERS SQUIBB COMPANY-2023-172750

PATIENT
  Age: 70 Year
  Sex: Male

DRUGS (22)
  1. TRIAMCINOLONE ACETONIDE [Suspect]
     Active Substance: TRIAMCINOLONE ACETONIDE
     Indication: Infusion site pain
     Dates: start: 2023
  2. TREPROSTINIL SODIUM [Suspect]
     Active Substance: TREPROSTINIL SODIUM
     Indication: Pulmonary arterial hypertension
     Route: 058
     Dates: start: 2023
  3. TREPROSTINIL SODIUM [Suspect]
     Active Substance: TREPROSTINIL SODIUM
     Route: 058
     Dates: start: 202304
  4. LIDOCAINE [Suspect]
     Active Substance: LIDOCAINE
     Indication: Infusion site pain
     Dates: start: 2023
  5. LIDOCAINE [Suspect]
     Active Substance: LIDOCAINE
     Dates: start: 2023
  6. TYLENOL [Suspect]
     Active Substance: ACETAMINOPHEN
     Indication: Infusion site pain
  7. ALCOHOL [Suspect]
     Active Substance: ALCOHOL
     Indication: Infusion site pain
  8. ALCOHOL [Suspect]
     Active Substance: ALCOHOL
     Indication: Infusion site erythema
  9. ALCOHOL [Suspect]
     Active Substance: ALCOHOL
     Indication: Infusion site swelling
  10. CALAMINE [Suspect]
     Active Substance: CALAMINE\FERRIC OXIDE RED\ZINC OXIDE
     Indication: Infusion site pain
  11. CALAMINE [Suspect]
     Active Substance: CALAMINE\FERRIC OXIDE RED\ZINC OXIDE
     Indication: Infusion site swelling
  12. CALAMINE [Suspect]
     Active Substance: CALAMINE\FERRIC OXIDE RED\ZINC OXIDE
     Indication: Infusion site erythema
  13. BIOFREEZE [Suspect]
     Active Substance: MENTHOL
     Indication: Infusion site pain
  14. BIOFREEZE [Suspect]
     Active Substance: MENTHOL
     Indication: Infusion site swelling
  15. BIOFREEZE [Suspect]
     Active Substance: MENTHOL
     Indication: Infusion site erythema
  16. NEOSPORIN [Suspect]
     Active Substance: BACITRACIN ZINC\NEOMYCIN SULFATE\POLYMYXIN B SULFATE
     Indication: Infusion site pain
  17. NEOSPORIN [Suspect]
     Active Substance: BACITRACIN ZINC\NEOMYCIN SULFATE\POLYMYXIN B SULFATE
     Indication: Infusion site swelling
  18. NEOSPORIN [Suspect]
     Active Substance: BACITRACIN ZINC\NEOMYCIN SULFATE\POLYMYXIN B SULFATE
     Indication: Infusion site erythema
  19. ANTI ITCH CREAM [Suspect]
     Active Substance: DIPHENHYDRAMINE HYDROCHLORIDE\ZINC ACETATE
     Indication: Infusion site pain
  20. ANTI ITCH (DIPHENHYDRAMINE HYDROCHLORIDE\ZINC ACETATE) [Suspect]
     Active Substance: DIPHENHYDRAMINE HYDROCHLORIDE\ZINC ACETATE
     Indication: Infusion site erythema
  21. ANTI ITCH (DIPHENHYDRAMINE HYDROCHLORIDE\ZINC ACETATE) [Suspect]
     Active Substance: DIPHENHYDRAMINE HYDROCHLORIDE\ZINC ACETATE
     Indication: Infusion site swelling
  22. TADALAFIL [Concomitant]
     Active Substance: TADALAFIL
     Indication: Product used for unknown indication

REACTIONS (11)
  - Infusion site pain [Not Recovered/Not Resolved]
  - Infusion site swelling [Not Recovered/Not Resolved]
  - Infusion site erythema [Not Recovered/Not Resolved]
  - Infusion site paraesthesia [Not Recovered/Not Resolved]
  - Dizziness [Unknown]
  - Infusion site oedema [Unknown]
  - Infusion site discharge [Unknown]
  - Infusion site bruising [Unknown]
  - Infusion site induration [Unknown]
  - Weight decreased [Unknown]
  - Therapy partial responder [Unknown]

NARRATIVE: CASE EVENT DATE: 20230101
